FAERS Safety Report 4493108-6 (Version None)
Quarter: 2004Q4

REPORT INFORMATION
  Report Type: 
  Country: None (occurrence: None)
  Receive Date: 20041104
  Receipt Date: 20041004
  Transmission Date: 20050328
  Serious: Yes (Other)
  Sender: FDA-Public Use
  Company Number: SE-GLAXOSMITHKLINE-B0347425A

PATIENT
  Age: 56 Year
  Sex: Male
  Weight: 81 kg

DRUGS (2)
  1. ZYBAN [Suspect]
     Dosage: 150MG UNKNOWN
     Route: 048
     Dates: start: 20040228, end: 20040310
  2. NO CONCURRENT MEDICATION [Concomitant]

REACTIONS (3)
  - RETINOPATHY HYPERTENSIVE [None]
  - TINNITUS [None]
  - VISUAL ACUITY REDUCED [None]
